FAERS Safety Report 15625282 (Version 1)
Quarter: 2018Q4

REPORT INFORMATION
  Report Type: Report from Study
  Country: US (occurrence: US)
  Receive Date: 20181116
  Receipt Date: 20181116
  Transmission Date: 20190205
  Serious: No
  Sender: FDA-Public Use
  Company Number: PHEH2018US048044

PATIENT
  Sex: Female

DRUGS (1)
  1. COSENTYX [Suspect]
     Active Substance: SECUKINUMAB
     Indication: PSORIASIS
     Dosage: 150 MG, QMO
     Route: 058

REACTIONS (7)
  - Asthenia [Unknown]
  - Pain in extremity [Unknown]
  - Musculoskeletal discomfort [Not Recovered/Not Resolved]
  - Peripheral swelling [Unknown]
  - Movement disorder [Unknown]
  - Back pain [Recovered/Resolved]
  - Dactylitis [Unknown]
